FAERS Safety Report 6043557-X (Version None)
Quarter: 2009Q1

REPORT INFORMATION
  Report Type: 
  Country: None (occurrence: None)
  Receive Date: 20090114
  Receipt Date: 20090114
  Transmission Date: 20090719
  Serious: No
  Sender: FDA-Public Use
  Company Number: None

PATIENT
  Sex: Male

DRUGS (1)
  1. DIFLUCAN [Suspect]
     Dates: start: 20081207, end: 20081212

REACTIONS (1)
  - MEDICATION ERROR [None]
